FAERS Safety Report 19965088 (Version 1)
Quarter: 2021Q4

REPORT INFORMATION
  Report Type: Spontaneous
  Country: CA (occurrence: CA)
  Receive Date: 20211018
  Receipt Date: 20211018
  Transmission Date: 20220303
  Serious: Yes (Other)
  Sender: FDA-Public Use
  Company Number: CA-BRACCO-2021CA04359

PATIENT
  Age: 76 Year
  Sex: Female

DRUGS (1)
  1. PROHANCE [Suspect]
     Active Substance: GADOTERIDOL
     Indication: Diagnostic procedure
     Dosage: 13 ML, SINGLE
     Route: 042

REACTIONS (1)
  - Throat tightness [Unknown]
